FAERS Safety Report 10932848 (Version 1)
Quarter: 2015Q1

REPORT INFORMATION
  Report Type: Spontaneous
  Country: US (occurrence: US)
  Receive Date: 20150320
  Receipt Date: 20150320
  Transmission Date: 20150721
  Serious: No
  Sender: FDA-Public Use
  Company Number: US-TEVA-548682USA

PATIENT
  Sex: Female
  Weight: 49.94 kg

DRUGS (4)
  1. ENJUVIA [Suspect]
     Active Substance: ESTROGENS, CONJUGATED SYNTHETIC B
     Indication: MENOPAUSAL SYMPTOMS
     Route: 065
     Dates: end: 20150311
  2. PROMETRIUM [Concomitant]
     Active Substance: PROGESTERONE
     Indication: NIGHT SWEATS
  3. PROMETRIUM [Concomitant]
     Active Substance: PROGESTERONE
     Indication: OSTEOPOROSIS
  4. MULTIVITAMIN [Concomitant]
     Active Substance: VITAMINS
     Indication: NUTRITIONAL SUPPLEMENTATION

REACTIONS (4)
  - Dysgeusia [Not Recovered/Not Resolved]
  - Incorrect drug dosage form administered [Unknown]
  - Product use issue [Unknown]
  - Night sweats [Not Recovered/Not Resolved]
